FAERS Safety Report 12669587 (Version 3)
Quarter: 2019Q1

REPORT INFORMATION
  Report Type: Spontaneous
  Country: GB (occurrence: GB)
  Receive Date: 20160819
  Receipt Date: 20190110
  Transmission Date: 20190417
  Serious: Yes (Life-Threatening, Hospitalization, Other)
  Sender: FDA-Public Use
  Company Number: GB-DRREDDYS-USA/UKI/16/0082509

PATIENT
  Age: 44 Year
  Sex: Male

DRUGS (12)
  1. ZOMORPH [Concomitant]
     Active Substance: MORPHINE SULFATE
     Indication: PRODUCT USED FOR UNKNOWN INDICATION
     Dosage: 20 MG BD
  2. QUETIAPINE. [Suspect]
     Active Substance: QUETIAPINE
     Indication: PRODUCT USED FOR UNKNOWN INDICATION
     Dosage: 150 MG FOR HIS EVENING DOSE AND THEN THE FOLLOWING DAY, HE TOOK 150 MG BD
  3. QUETIAPINE. [Interacting]
     Active Substance: QUETIAPINE
     Route: 065
  4. DIAZEPAM. [Concomitant]
     Active Substance: DIAZEPAM
     Indication: PRODUCT USED FOR UNKNOWN INDICATION
     Dosage: 2 MG TDS
  5. QUETIAPINE. [Interacting]
     Active Substance: QUETIAPINE
     Route: 065
  6. QUETIAPINE. [Interacting]
     Active Substance: QUETIAPINE
     Route: 065
  7. VENLAFAXINE HYDROCHLORIDE. [Interacting]
     Active Substance: VENLAFAXINE HYDROCHLORIDE
     Indication: PRODUCT USED FOR UNKNOWN INDICATION
     Dosage: 300 MG OD
     Route: 048
  8. PROCYCLIDINE [Concomitant]
     Active Substance: PROCYCLIDINE
     Indication: MYOCLONUS
     Dosage: 2.5 MG TDS
  9. QUETIAPINE. [Interacting]
     Active Substance: QUETIAPINE
     Route: 065
  10. VENLAFAXINE HYDROCHLORIDE. [Interacting]
     Active Substance: VENLAFAXINE HYDROCHLORIDE
  11. CLOMETHIAZOLE [Concomitant]
     Active Substance: CLOMETHIAZOLE
     Indication: PRODUCT USED FOR UNKNOWN INDICATION
     Dosage: CLOMETHIOZOLE 384 MG OD
  12. PREGABALIN. [Concomitant]
     Active Substance: PREGABALIN
     Indication: PRODUCT USED FOR UNKNOWN INDICATION
     Dosage: 300 MG BD

REACTIONS (4)
  - Drug interaction [Recovered/Resolved]
  - Systemic inflammatory response syndrome [Recovered/Resolved]
  - Lactic acidosis [Recovered/Resolved]
  - Serotonin syndrome [Recovered/Resolved]
